FAERS Safety Report 14472671 (Version 1)
Quarter: 2018Q1

REPORT INFORMATION
  Report Type: Spontaneous
  Country: US (occurrence: US)
  Receive Date: 20180201
  Receipt Date: 20180201
  Transmission Date: 20180509
  Serious: Yes (Hospitalization, Other)
  Sender: FDA-Public Use
  Company Number: US-UCBSA-2018003059

PATIENT
  Age: 48 Year
  Sex: Male
  Weight: 110 kg

DRUGS (6)
  1. DEPAKOTE [Suspect]
     Active Substance: DIVALPROEX SODIUM
     Dosage: 500 MG, 2X/DAY (BID)
     Route: 048
     Dates: start: 20170619
  2. DEPAKOTE [Suspect]
     Active Substance: DIVALPROEX SODIUM
     Dosage: UNK
     Route: 048
     Dates: start: 201710
  3. DILANTIN [Suspect]
     Active Substance: PHENYTOIN
     Dosage: 300 MG TWICE DAILY AND 50 MG HS
     Route: 048
     Dates: start: 20170619
  4. DILANTIN [Suspect]
     Active Substance: PHENYTOIN
     Indication: SEIZURE
     Dosage: 300 MG, ONCE DAILY (QD)
     Route: 048
  5. KEPPRA [Suspect]
     Active Substance: LEVETIRACETAM
     Indication: SEIZURE
     Dosage: 1500 MG, 2X/DAY (BID)
     Route: 048
     Dates: start: 20170619
  6. DEPAKOTE [Suspect]
     Active Substance: DIVALPROEX SODIUM
     Indication: SEIZURE
     Dosage: 1000 MG, 2X/DAY (BID)
     Route: 048

REACTIONS (7)
  - Electrocardiogram QT prolonged [Unknown]
  - Lung consolidation [Unknown]
  - Dehydration [Unknown]
  - Seizure [Recovered/Resolved]
  - Anticonvulsant drug level below therapeutic [Unknown]
  - Hypobarism [Unknown]
  - Stress [Unknown]

NARRATIVE: CASE EVENT DATE: 20171115
